FAERS Safety Report 7005561-4 (Version None)
Quarter: 2010Q3

REPORT INFORMATION
  Report Type: 
  Country: None (occurrence: None)
  Receive Date: 20100921
  Receipt Date: 20100910
  Transmission Date: 20110219
  Serious: Yes (Hospitalization)
  Sender: FDA-Public Use
  Company Number: A0802622A

PATIENT
  Age: 54 Year
  Sex: Male
  Weight: 89.5 kg

DRUGS (1)
  1. AVANDIA [Suspect]
     Indication: DIABETES MELLITUS
     Dosage: 4MG TWICE PER DAY
     Route: 048
     Dates: start: 20070201, end: 20070701

REACTIONS (3)
  - ACUTE CORONARY SYNDROME [None]
  - DISABILITY [None]
  - MYOCARDIAL INFARCTION [None]
